FAERS Safety Report 6624109-7 (Version None)
Quarter: 2010Q1

REPORT INFORMATION
  Report Type: 
  Country: None (occurrence: None)
  Receive Date: 20100310
  Receipt Date: 20100225
  Transmission Date: 20100710
  Serious: Yes (Other)
  Sender: FDA-Public Use
  Company Number: BR-PFIZER INC-2010025026

PATIENT
  Age: 70 Year
  Sex: Female

DRUGS (3)
  1. XALATAN [Suspect]
     Indication: GLAUCOMA
     Dosage: 3 UG, 1X/DAY
     Route: 047
     Dates: start: 20091201, end: 20091203
  2. OCUPRESS [Concomitant]
     Dosage: UNK
     Dates: start: 20080101
  3. AZOPT [Concomitant]
     Dosage: UNK
     Dates: start: 20090101

REACTIONS (1)
  - BLOODY DISCHARGE [None]
